FAERS Safety Report 16254372 (Version 1)
Quarter: 2019Q2

REPORT INFORMATION
  Report Type: Other
  Country: ID (occurrence: ID)
  Receive Date: 20190430
  Receipt Date: 20190430
  Transmission Date: 20190711
  Serious: Yes (Other)
  Sender: FDA-Public Use
  Company Number: ID-ORCHID HEALTHCARE-2066421

PATIENT
  Age: 30 Year
  Sex: Female

DRUGS (2)
  1. MEFENAMIC ACID. [Suspect]
     Active Substance: MEFENAMIC ACID
     Route: 065
  2. CEFADROXIL. [Suspect]
     Active Substance: CEFADROXIL
     Indication: BREAST TUMOUR EXCISION
     Route: 065

REACTIONS (1)
  - Drug reaction with eosinophilia and systemic symptoms [Unknown]
